FAERS Safety Report 9578132 (Version 3)
Quarter: 2013Q4

REPORT INFORMATION
  Report Type: Spontaneous
  Country: US (occurrence: US)
  Receive Date: 20131001
  Receipt Date: 20131202
  Transmission Date: 20140711
  Serious: No
  Sender: FDA-Public Use
  Company Number: US-AMGEN-USASP2013008955

PATIENT
  Age: 58 Year
  Sex: Female
  Weight: 70.75 kg

DRUGS (11)
  1. ENBREL [Suspect]
     Indication: RHEUMATOID ARTHRITIS
     Dosage: 50 MG, QWK
     Route: 058
     Dates: start: 20110915
  2. BENAZEPRIL [Concomitant]
     Dosage: 10 MG, TID
     Route: 048
  3. DICLOFENAC [Concomitant]
     Indication: PAIN
     Dosage: 1 %, AS NECESSARY
     Route: 061
  4. FOLIC ACID [Concomitant]
     Dosage: 1 MG, QD
     Route: 048
  5. HYDROCHLOROTHIAZIDE [Concomitant]
     Dosage: 25 MG, QD
     Route: 048
  6. HYDROXYCHLOROQUINE [Concomitant]
     Dosage: 200 MG, BID
     Route: 048
  7. LIDODERM [Concomitant]
     Dosage: 5 %, UNK, APPLY ONE PATCH DAILY FOR UP TO 12 HOURS PRN.
     Route: 061
  8. NORVASC [Concomitant]
     Dosage: 5 MG, QD
     Route: 048
  9. SULFASALAZIN [Concomitant]
     Dosage: 500 MG, UNK
     Route: 048
  10. TRAMADOL [Concomitant]
     Dosage: 50 MG, EVERY MORNING.
     Route: 048
  11. VOLTAREN                           /00372301/ [Concomitant]
     Dosage: 1 %, APPLY TO HANDS BID PRN
     Route: 061

REACTIONS (4)
  - Malaise [Recovered/Resolved]
  - Injection site erythema [Not Recovered/Not Resolved]
  - Injection site swelling [Not Recovered/Not Resolved]
  - Injection site pruritus [Not Recovered/Not Resolved]
